FAERS Safety Report 15353749 (Version 1)
Quarter: 2018Q3

REPORT INFORMATION
  Report Type: Spontaneous
  Country: US (occurrence: US)
  Receive Date: 20180905
  Receipt Date: 20180905
  Transmission Date: 20181010
  Serious: Yes (Hospitalization)
  Sender: FDA-Public Use
  Company Number: US-SHIRE-US201833455

PATIENT
  Sex: Female

DRUGS (3)
  1. CINRYZE [Suspect]
     Active Substance: HUMAN C1-ESTERASE INHIBITOR
     Indication: PRODUCT USED FOR UNKNOWN INDICATION
     Dosage: 1500 IU, EVERY 3 DAYS
     Route: 042
     Dates: start: 20180116
  2. FIRAZYR [Suspect]
     Active Substance: ICATIBANT ACETATE
     Indication: PRODUCT USED FOR UNKNOWN INDICATION
     Dosage: 30 IU, AS REQ^D
     Route: 058
     Dates: start: 20170505, end: 20180828
  3. KALBITOR [Suspect]
     Active Substance: ECALLANTIDE
     Indication: PRODUCT USED FOR UNKNOWN INDICATION
     Dosage: UNK, AS REQ^D
     Route: 058
     Dates: start: 20141009

REACTIONS (3)
  - Live birth [Unknown]
  - Exposure during pregnancy [Unknown]
  - Prescribed overdose [Unknown]
